FAERS Safety Report 25202746 (Version 4)
Quarter: 2025Q3

REPORT INFORMATION
  Report Type: Report from Study
  Country: GB (occurrence: GB)
  Receive Date: 20250416
  Receipt Date: 20250807
  Transmission Date: 20251021
  Serious: Yes (Other)
  Sender: NOVARTIS
  Company Number: GB-002147023-NVSC2025GB062103

PATIENT
  Sex: Female

DRUGS (2)
  1. COSENTYX [Suspect]
     Active Substance: SECUKINUMAB
     Indication: Hidradenitis
     Dosage: 300 MG, WEEK 0,1,2,3
     Route: 058
     Dates: start: 20250411
  2. COSENTYX [Suspect]
     Active Substance: SECUKINUMAB
     Dosage: 300 MG, QMO
     Route: 065

REACTIONS (12)
  - Lower respiratory tract infection [Unknown]
  - Breast abscess [Unknown]
  - Groin abscess [Unknown]
  - Malaise [Not Recovered/Not Resolved]
  - Productive cough [Not Recovered/Not Resolved]
  - Oropharyngeal pain [Not Recovered/Not Resolved]
  - Dysphonia [Unknown]
  - Dyspnoea [Unknown]
  - Feeding disorder [Unknown]
  - Aphasia [Not Recovered/Not Resolved]
  - Wound [Recovering/Resolving]
  - Laryngitis [Unknown]
